FAERS Safety Report 13147049 (Version 1)
Quarter: 2017Q1

REPORT INFORMATION
  Report Type: Spontaneous
  Country: HK (occurrence: HK)
  Receive Date: 20170125
  Receipt Date: 20170125
  Transmission Date: 20170428
  Serious: Yes (Other)
  Sender: FDA-Public Use
  Company Number: HK-MACLEODS PHARMACEUTICALS US LTD-MAC2017004244

PATIENT

DRUGS (1)
  1. LEVOFLOXACIN. [Suspect]
     Active Substance: LEVOFLOXACIN
     Indication: PROPHYLAXIS
     Dosage: 500 MG, QD
     Route: 065

REACTIONS (3)
  - Oedema peripheral [Unknown]
  - Nephrotic syndrome [Unknown]
  - Urine abnormality [Unknown]
